FAERS Safety Report 12781411 (Version 2)
Quarter: 2016Q4

REPORT INFORMATION
  Report Type: Report from Study
  Country: US (occurrence: US)
  Receive Date: 20160926
  Receipt Date: 20161118
  Transmission Date: 20170207
  Serious: Yes (Hospitalization)
  Sender: FDA-Public Use
  Company Number: US-ACTELION-A-NJ2016-135053

PATIENT
  Age: 74 Year
  Sex: Male

DRUGS (5)
  1. OPSUMIT [Suspect]
     Active Substance: MACITENTAN
     Indication: PULMONARY ARTERIAL HYPERTENSION
     Dosage: 10 MG, QD
     Route: 048
     Dates: start: 201603, end: 201605
  2. COUMADIN [Concomitant]
     Active Substance: WARFARIN SODIUM
     Dosage: 7.5 MG, SUNDAY
     Route: 048
  3. DIURETICS [Concomitant]
     Active Substance: UNSPECIFIED INGREDIENT
  4. OPSUMIT [Suspect]
     Active Substance: MACITENTAN
     Dosage: 10 MG, QD
     Route: 048
     Dates: start: 20160628
  5. COUMADIN [Concomitant]
     Active Substance: WARFARIN SODIUM
     Dosage: 5 MG ,MONDAY TO SATURDAY
     Route: 048

REACTIONS (15)
  - Transfusion [Recovered/Resolved]
  - Blood pressure decreased [Unknown]
  - Mineral supplementation [Recovered/Resolved]
  - Ulcer haemorrhage [Recovered/Resolved]
  - Anaemia [Unknown]
  - Upper gastrointestinal haemorrhage [Recovered/Resolved]
  - Condition aggravated [Recovered/Resolved]
  - Peripheral swelling [Recovered/Resolved]
  - Malaise [Not Recovered/Not Resolved]
  - Hypoacusis [Recovered/Resolved]
  - Swelling [Recovered/Resolved]
  - Fluid retention [Recovered/Resolved]
  - Gait disturbance [Recovered/Resolved]
  - Cardiac failure congestive [Recovered/Resolved]
  - Weight decreased [Recovered/Resolved]

NARRATIVE: CASE EVENT DATE: 2016
